FAERS Safety Report 12432365 (Version 1)
Quarter: 2016Q2

REPORT INFORMATION
  Report Type: Spontaneous
  Country: US (occurrence: US)
  Receive Date: 20160603
  Receipt Date: 20160603
  Transmission Date: 20160815
  Serious: Yes (Other)
  Sender: FDA-Public Use
  Company Number: US-DSJP-DSU-2015-119598

PATIENT
  Age: 57 Year
  Sex: Male
  Weight: 78.5 kg

DRUGS (4)
  1. BENICAR HCT [Suspect]
     Active Substance: HYDROCHLOROTHIAZIDE\OLMESARTAN MEDOXOMIL
     Indication: HYPERTENSION
     Dosage: 40/12. 5 MG DAILY
     Route: 048
  2. BENICAR [Suspect]
     Active Substance: OLMESARTAN MEDOXOMIL
     Indication: HYPERTENSION
     Dosage: 40 MG, UNK
  3. ATENOLOL. [Concomitant]
     Active Substance: ATENOLOL
     Indication: PRODUCT USED FOR UNKNOWN INDICATION
     Dosage: 25 MG, QD
  4. SIMVASTATIN. [Concomitant]
     Active Substance: SIMVASTATIN
     Indication: PRODUCT USED FOR UNKNOWN INDICATION
     Dosage: 20 MG, QD

REACTIONS (8)
  - Acute kidney injury [Unknown]
  - Coeliac disease [Unknown]
  - Malabsorption [Unknown]
  - Renal disorder [Unknown]
  - Decreased appetite [Unknown]
  - Gastritis [Unknown]
  - Duodenal polyp [Recovered/Resolved]
  - Gluten sensitivity [Unknown]

NARRATIVE: CASE EVENT DATE: 201103
